FAERS Safety Report 5518167-0 (Version None)
Quarter: 2007Q4

REPORT INFORMATION
  Report Type: 
  Country: None (occurrence: None)
  Receive Date: 20071113
  Receipt Date: 20071113
  Transmission Date: 20080405
  Serious: Yes (Hospitalization)
  Sender: FDA-Public Use
  Company Number: None

PATIENT
  Sex: Female

DRUGS (1)
  1. ARIXTRA [Suspect]
     Dosage: 5 MG DAILY SQ
     Route: 058

REACTIONS (3)
  - ILL-DEFINED DISORDER [None]
  - INFUSION SITE EXTRAVASATION [None]
  - PROCEDURAL COMPLICATION [None]
